FAERS Safety Report 18510233 (Version 1)
Quarter: 2020Q4

REPORT INFORMATION
  Report Type: Spontaneous
  Country: CN (occurrence: CN)
  Receive Date: 20201117
  Receipt Date: 20201117
  Transmission Date: 20210114
  Serious: Yes (Other)
  Sender: FDA-Public Use
  Company Number: CN-SUN PHARMACEUTICAL INDUSTRIES LTD-2020R1-267761

PATIENT
  Age: 28 Year
  Sex: Male

DRUGS (5)
  1. BUCINNAZINE [Suspect]
     Active Substance: BUCINNAZINE
     Indication: PRODUCT USED FOR UNKNOWN INDICATION
     Dosage: SMALL DOSES
     Route: 065
  2. BUCINNAZINE [Suspect]
     Active Substance: BUCINNAZINE
     Dosage: SOON INCREASED TO 1200 MILLIGRAM, DAILY
     Route: 065
  3. MORPHINE [Suspect]
     Active Substance: MORPHINE
     Indication: PAIN
     Dosage: 200 MG MORPHINE EVERY 2 MONTHS
     Route: 065
     Dates: start: 2006
  4. ALPRAZOLAM. [Suspect]
     Active Substance: ALPRAZOLAM
     Indication: PRODUCT USED FOR UNKNOWN INDICATION
     Dosage: UNK
     Route: 065
  5. ZOPICLONE [Suspect]
     Active Substance: ZOPICLONE
     Indication: PRODUCT USED FOR UNKNOWN INDICATION
     Dosage: UNK
     Route: 065

REACTIONS (7)
  - Insomnia [Recovering/Resolving]
  - Agitation [Recovering/Resolving]
  - Yawning [Unknown]
  - Lacrimation increased [Unknown]
  - Depression [Recovering/Resolving]
  - Manic symptom [Recovering/Resolving]
  - Drug dependence [Recovered/Resolved]
